FAERS Safety Report 11938159 (Version 1)
Quarter: 2016Q1

REPORT INFORMATION
  Report Type: Spontaneous
  Country: US (occurrence: None)
  Receive Date: 20160120
  Receipt Date: 20160120
  Transmission Date: 20160526
  Serious: No
  Sender: FDA-Public Use
  Company Number: None

PATIENT
  Age: 66 Year
  Sex: Male

DRUGS (1)
  1. NEXAVAR [Suspect]
     Active Substance: SORAFENIB
     Indication: HEPATIC CANCER
     Dosage: 400MG QAM AND 200MG QPM, BID, ORAL
     Dates: start: 20150722, end: 20151214

REACTIONS (2)
  - Pain [None]
  - Decreased appetite [None]

NARRATIVE: CASE EVENT DATE: 20160118
